FAERS Safety Report 4282368-2 (Version None)
Quarter: 2004Q1

REPORT INFORMATION
  Report Type: 
  Country: None (occurrence: None)
  Receive Date: 20040114
  Receipt Date: 20030120
  Transmission Date: 20041129
  Serious: Yes (Other)
  Sender: FDA-Public Use
  Company Number: PHEH2002US10706

PATIENT
  Age: 56 Year
  Sex: Male

DRUGS (10)
  1. SANDOSTATIN LAR [Suspect]
     Indication: CARCINOID SYNDROME
     Dosage: 20 MG, QMO
     Dates: start: 20020501
  2. PROZAC [Concomitant]
  3. NIFEDIPINE [Concomitant]
  4. TERAZOSIN (TERAZOSIN) [Concomitant]
  5. GLIPIZIDE [Concomitant]
  6. TRIAMTERENE [Concomitant]
  7. OMEPRAZOLE [Concomitant]
  8. MULTIVITAMINS (RETINOL, PANTHENOL) [Concomitant]
  9. DIOVAN [Concomitant]
  10. HYDROCHLOROTHIAZIDE [Concomitant]

REACTIONS (3)
  - ARTHRALGIA [None]
  - ARTHRITIS [None]
  - NAUSEA [None]
